FAERS Safety Report 15347161 (Version 3)
Quarter: 2019Q2

REPORT INFORMATION
  Report Type: Spontaneous
  Country: US (occurrence: US)
  Receive Date: 20180904
  Receipt Date: 20190624
  Transmission Date: 20190711
  Serious: No
  Sender: FDA-Public Use
  Company Number: US-BIOGEN-2013BI067886

PATIENT
  Age: 32 Year
  Sex: Female

DRUGS (4)
  1. AVONEX [Suspect]
     Active Substance: INTERFERON BETA-1A
     Indication: MULTIPLE SCLEROSIS
     Dosage: -INJECT 30 MCG?INTRAMUSCULAR?EVERY WEEK
     Route: 050
     Dates: start: 20130408
  2. AVONEX [Suspect]
     Active Substance: INTERFERON BETA-1A
     Route: 065
     Dates: start: 20130411, end: 20160818
  3. MINOCYCLINE HCL [Concomitant]
     Active Substance: MINOCYCLINE HYDROCHLORIDE
     Route: 050
  4. AVONEX [Suspect]
     Active Substance: INTERFERON BETA-1A
     Route: 065
     Dates: start: 20120920

REACTIONS (9)
  - Paraesthesia [Unknown]
  - Influenza like illness [Unknown]
  - Memory impairment [Unknown]
  - Injection site pain [Unknown]
  - Migraine [Unknown]
  - Fatigue [Unknown]
  - Pruritus [Unknown]
  - Weight increased [Unknown]
  - Injection site pruritus [Unknown]

NARRATIVE: CASE EVENT DATE: 201304
